FAERS Safety Report 9287273 (Version 1)
Quarter: 2013Q2

REPORT INFORMATION
  Report Type: Spontaneous
  Country: CA (occurrence: CA)
  Receive Date: 20130513
  Receipt Date: 20130513
  Transmission Date: 20140414
  Serious: Yes (Other)
  Sender: FDA-Public Use
  Company Number: CA-B.I. PHARMACEUTICALS,INC./RIDGEFIELD-2013-CN-00837CN

PATIENT
  Sex: Male
  Weight: 100 kg

DRUGS (4)
  1. PRADAXA [Suspect]
     Indication: ATRIAL FIBRILLATION
     Dosage: 220 MG
     Route: 048
     Dates: start: 201211
  2. TYLENOL EXTRA STRENGTH [Concomitant]
  3. ZOPICLONE [Concomitant]
  4. ASPIRIN [Concomitant]

REACTIONS (5)
  - Diplegia [Recovered/Resolved]
  - Monoplegia [Recovered/Resolved]
  - Feeling abnormal [Unknown]
  - Arthralgia [Not Recovered/Not Resolved]
  - Pain in extremity [Not Recovered/Not Resolved]
